FAERS Safety Report 14544386 (Version 8)
Quarter: 2022Q1

REPORT INFORMATION
  Report Type: Report from Study
  Country: DE (occurrence: DE)
  Receive Date: 20180216
  Receipt Date: 20220307
  Transmission Date: 20220423
  Serious: Yes (Death, Hospitalization, Other)
  Sender: FDA-Public Use
  Company Number: DE-BRISTOL-MYERS SQUIBB COMPANY-BMS-2017-121051

PATIENT
  Age: 63 Year
  Sex: Male
  Weight: 61 kg

DRUGS (14)
  1. NIVOLUMAB [Suspect]
     Active Substance: NIVOLUMAB
     Indication: Lung neoplasm malignant
     Dosage: 1 DOSAGE FORM, Q2WK
     Route: 065
     Dates: start: 20170522, end: 20171009
  2. NIVOLUMAB [Suspect]
     Active Substance: NIVOLUMAB
     Indication: Malignant melanoma
  3. ASPIRIN [Concomitant]
     Active Substance: ASPIRIN
     Indication: Peripheral vascular disorder
     Dosage: 100 MG, QD
     Route: 048
     Dates: start: 2002
  4. PANTOPRAZOLE SODIUM [Concomitant]
     Active Substance: PANTOPRAZOLE SODIUM
     Indication: Prophylaxis
     Dosage: 20 MG, UNK
     Route: 048
     Dates: start: 20171009
  5. ALBUTEROL [Concomitant]
     Active Substance: ALBUTEROL
     Indication: Chronic obstructive pulmonary disease
     Dosage: 20 GTT, UNK
     Route: 055
     Dates: start: 201704
  6. PREDNISONE [Concomitant]
     Active Substance: PREDNISONE
     Indication: Bronchial carcinoma
     Dosage: 10 MG, UNK
     Route: 048
     Dates: start: 201702
  7. PREDNISONE [Concomitant]
     Active Substance: PREDNISONE
     Indication: Cough
  8. TACHOLIQUIN [Concomitant]
     Indication: Bronchial carcinoma
     Dosage: 5 UNK, UNK
     Route: 055
     Dates: start: 201706
  9. TACHOLIQUIN [Concomitant]
     Indication: Cough
  10. PREGABALIN [Concomitant]
     Active Substance: PREGABALIN
     Indication: Polyneuropathy
     Dosage: 75 MG, QD
     Route: 048
     Dates: start: 20170623
  11. DULCOLAX (BISACODYL) [Concomitant]
     Active Substance: BISACODYL
     Indication: Constipation
     Dosage: 1 TAB, PRN
     Route: 048
     Dates: start: 20170619
  12. FLUTICASONE PROPIONATE [Concomitant]
     Active Substance: FLUTICASONE PROPIONATE
     Indication: Chronic obstructive pulmonary disease
     Dosage: 500 ?G, UNK
     Route: 055
     Dates: start: 20170703
  13. OLODATEROL HYDROCHLORIDE\TIOTROPIUM BROMIDE MONOHYDRATE [Concomitant]
     Active Substance: OLODATEROL HYDROCHLORIDE\TIOTROPIUM BROMIDE MONOHYDRATE
     Indication: Chronic obstructive pulmonary disease
     Dosage: 2 DF, UNK
     Route: 055
     Dates: start: 20170818
  14. MORPHINE SULFATE [Concomitant]
     Active Substance: MORPHINE SULFATE
     Indication: Tumour pain
     Dosage: 40 MG, UNK
     Route: 048
     Dates: start: 20170915

REACTIONS (2)
  - Staphylococcal sepsis [Fatal]
  - Malignant neoplasm progression [Fatal]

NARRATIVE: CASE EVENT DATE: 20171013
